FAERS Safety Report 9866903 (Version 1)
Quarter: 2014Q1

REPORT INFORMATION
  Report Type: Spontaneous
  Country: US (occurrence: US)
  Receive Date: 20140204
  Receipt Date: 20140204
  Transmission Date: 20141002
  Serious: Yes (Other)
  Sender: FDA-Public Use
  Company Number: US-TEVA-459303USA

PATIENT
  Age: 76 Year
  Sex: Female
  Weight: 102.15 kg

DRUGS (7)
  1. PROVIGIL [Suspect]
     Indication: NARCOLEPSY
     Dates: start: 2008, end: 20131231
  2. ATENOLOL [Concomitant]
     Indication: BLOOD PRESSURE
  3. HYDROMORPHONE [Concomitant]
     Indication: PAIN
  4. HYDROMORPHONE [Concomitant]
     Indication: OSTEOARTHRITIS
  5. CLONIDINE [Concomitant]
     Indication: BLOOD PRESSURE
  6. SYNTHROID [Concomitant]
     Indication: HYPOTHYROIDISM
  7. XANAX [Concomitant]
     Indication: PANIC DISORDER

REACTIONS (25)
  - Mental status changes [Not Recovered/Not Resolved]
  - Sudden onset of sleep [Not Recovered/Not Resolved]
  - Drug dependence [Not Recovered/Not Resolved]
  - Agitation [Not Recovered/Not Resolved]
  - Aggression [Not Recovered/Not Resolved]
  - Feeling abnormal [Not Recovered/Not Resolved]
  - Hypersomnia [Not Recovered/Not Resolved]
  - Depression [Not Recovered/Not Resolved]
  - Catatonia [Not Recovered/Not Resolved]
  - Weight decreased [Not Recovered/Not Resolved]
  - Body height decreased [Not Recovered/Not Resolved]
  - Blood pressure decreased [Not Recovered/Not Resolved]
  - Headache [Not Recovered/Not Resolved]
  - Back pain [Not Recovered/Not Resolved]
  - Neck pain [Not Recovered/Not Resolved]
  - Pain [Not Recovered/Not Resolved]
  - Palpitations [Not Recovered/Not Resolved]
  - Tachycardia [Not Recovered/Not Resolved]
  - Confusional state [Not Recovered/Not Resolved]
  - Activities of daily living impaired [Not Recovered/Not Resolved]
  - Crying [Not Recovered/Not Resolved]
  - Dizziness [Not Recovered/Not Resolved]
  - Dizziness [Not Recovered/Not Resolved]
  - Vertigo [Not Recovered/Not Resolved]
  - Fall [Not Recovered/Not Resolved]
